FAERS Safety Report 5527021-X (Version None)
Quarter: 2007Q4

REPORT INFORMATION
  Report Type: 
  Country: None (occurrence: None)
  Receive Date: 20071127
  Receipt Date: 20071109
  Transmission Date: 20080405
  Serious: Yes (Hospitalization)
  Sender: FDA-Public Use
  Company Number: JP-AMGEN-US238698

PATIENT
  Sex: Female
  Weight: 48 kg

DRUGS (6)
  1. ENBREL [Suspect]
     Indication: RHEUMATOID ARTHRITIS
     Route: 058
     Dates: start: 20061116, end: 20070416
  2. NEUER [Concomitant]
     Route: 048
  3. PIPETHANATE HYDROCHLORIDE [Concomitant]
     Route: 065
  4. ZEPOLAS [Concomitant]
     Route: 065
  5. PREDONINE [Concomitant]
     Route: 065
  6. VOLTAREN [Concomitant]
     Route: 065

REACTIONS (2)
  - LEUKOCYTOCLASTIC VASCULITIS [None]
  - NEPHROTIC SYNDROME [None]
